FAERS Safety Report 12896850 (Version 2)
Quarter: 2017Q1

REPORT INFORMATION
  Report Type: Spontaneous
  Country: US (occurrence: US)
  Receive Date: 20161031
  Receipt Date: 20170115
  Transmission Date: 20170428
  Serious: No
  Sender: FDA-Public Use
  Company Number: US-ASTRAZENECA-2016SF12653

PATIENT
  Sex: Female

DRUGS (8)
  1. ESOMEPRAZOLE MAGNESIUM. [Suspect]
     Active Substance: ESOMEPRAZOLE MAGNESIUM
     Dosage: UNK
     Route: 048
  2. BETHANECHOL [Suspect]
     Active Substance: BETHANECHOL
     Dosage: UNK
     Route: 065
  3. LOSARTAN POTASSIUM/HCTZ [Suspect]
     Active Substance: HYDROCHLOROTHIAZIDE\LOSARTAN POTASSIUM
     Dosage: UNK
     Route: 065
  4. LEVOFLOXACIN. [Suspect]
     Active Substance: LEVOFLOXACIN
     Dosage: DOSING UNKNOWN
     Route: 065
  5. PENICILLIN [Suspect]
     Active Substance: PENICILLIN
     Dosage: DOSING UNKNOWN
     Route: 065
  6. AZITHROMYCIN ANHYDROUS. [Suspect]
     Active Substance: AZITHROMYCIN ANHYDROUS
     Dosage: UNK
     Route: 065
  7. ERYTHROMYCIN. [Suspect]
     Active Substance: ERYTHROMYCIN
     Dosage: UNK
     Route: 065
  8. SULFA [Suspect]
     Active Substance: UNSPECIFIED INGREDIENT
     Dosage: DOSING UNKNOWN
     Route: 065

REACTIONS (1)
  - Drug hypersensitivity [Unknown]
